FAERS Safety Report 5656237-7 (Version None)
Quarter: 2008Q1

REPORT INFORMATION
  Report Type: 
  Country: None (occurrence: None)
  Receive Date: 20080305
  Receipt Date: 20080225
  Transmission Date: 20080703
  Serious: Yes (Hospitalization)
  Sender: FDA-Public Use
  Company Number: 2008AL001091

PATIENT
  Age: 16 Year
  Sex: Female

DRUGS (1)
  1. PROPYLTHIOURACIL TAB [Suspect]
     Indication: BASEDOW'S DISEASE
     Dosage: PO
     Route: 048
     Dates: start: 19950101, end: 20010401

REACTIONS (15)
  - ABDOMINAL PAIN UPPER [None]
  - ANTINEUTROPHIL CYTOPLASMIC ANTIBODY POSITIVE [None]
  - ANTIPHOSPHOLIPID SYNDROME [None]
  - ARTHRALGIA [None]
  - CARDIAC MURMUR [None]
  - COAGULATION FACTOR XIII LEVEL DECREASED [None]
  - DEEP VEIN THROMBOSIS [None]
  - GLOMERULONEPHRITIS [None]
  - GOITRE [None]
  - HAEMOGLOBIN DECREASED [None]
  - HENOCH-SCHONLEIN PURPURA [None]
  - LACUNAR INFARCTION [None]
  - LEUKOCYTOCLASTIC VASCULITIS [None]
  - RASH MACULO-PAPULAR [None]
  - RETICULOCYTE COUNT DECREASED [None]
